FAERS Safety Report 6292471-3 (Version None)
Quarter: 2009Q3

REPORT INFORMATION
  Report Type: 
  Country: None (occurrence: None)
  Receive Date: 20090731
  Receipt Date: 20090721
  Transmission Date: 20100115
  Serious: Yes (Hospitalization)
  Sender: FDA-Public Use
  Company Number: FR-PFIZER INC-2009243109

PATIENT
  Age: 44 Year

DRUGS (13)
  1. ZOLOFT [Suspect]
     Indication: DEPRESSION
     Dosage: 50 MG, 1X/DAY
     Route: 048
     Dates: start: 20090504, end: 20090513
  2. RIVOTRIL [Suspect]
     Indication: NEURALGIA
     Dosage: 3 DF, 1X/DAY
     Route: 048
     Dates: start: 20090505, end: 20090512
  3. RIVOTRIL [Suspect]
     Dosage: 5 DF, 3X/DAY
  4. TOPALGIC [Suspect]
     Indication: NEURALGIA
     Dosage: 100 MG, 1X/DAY
     Route: 048
     Dates: start: 20090501, end: 20090513
  5. ATARAX [Concomitant]
     Indication: PREMEDICATION
     Dosage: 100 MG, SINGLE
     Route: 048
     Dates: start: 20090514, end: 20090514
  6. NEXIUM [Concomitant]
     Dosage: UNK
  7. KARDEGIC [Concomitant]
     Dosage: 160 UNK, UNK
  8. PARACETAMOL [Concomitant]
     Dosage: 1 G, 4X/DAY
  9. LOVENOX [Concomitant]
     Dosage: 0.4 UNK, UNK
  10. TARDYFERON [Concomitant]
     Dosage: UNK
  11. POLYETHYLENE GLYCOL [Concomitant]
  12. NORMACOL [Concomitant]
  13. NUTRISON [Concomitant]

REACTIONS (1)
  - CONVULSION [None]
